FAERS Safety Report 13792750 (Version 1)
Quarter: 2017Q3

REPORT INFORMATION
  Report Type: Spontaneous
  Country: TR (occurrence: TR)
  Receive Date: 20170725
  Receipt Date: 20170725
  Transmission Date: 20171127
  Serious: Yes (Hospitalization)
  Sender: FDA-Public Use
  Company Number: TR-ENDO PHARMACEUTICALS INC-2017-003977

PATIENT
  Age: 47 Year
  Sex: Female

DRUGS (2)
  1. LEVETIRACETAM TABLETS [Suspect]
     Active Substance: LEVETIRACETAM
     Dosage: 1500 MG, BID
     Route: 065
  2. LEVETIRACETAM TABLETS [Suspect]
     Active Substance: LEVETIRACETAM
     Indication: EPILEPSY
     Dosage: 500 MG, BID
     Route: 065

REACTIONS (1)
  - Granuloma annulare [Recovered/Resolved]
